FAERS Safety Report 8108921-3 (Version None)
Quarter: 2012Q1

REPORT INFORMATION
  Report Type: 
  Country: None (occurrence: None)
  Receive Date: 20120202
  Receipt Date: 20120113
  Transmission Date: 20120608
  Serious: Yes (Hospitalization)
  Sender: FDA-Public Use
  Company Number: JP-GLAXOSMITHKLINE-B0775708A

PATIENT
  Sex: Male

DRUGS (6)
  1. ZYPREXA [Concomitant]
     Route: 048
  2. PRAVASTATIN SODIUM [Concomitant]
     Route: 048
  3. LAMICTAL [Suspect]
     Indication: BIPOLAR DISORDER
     Route: 048
     Dates: start: 20111201, end: 20111201
  4. DEPAKENE [Concomitant]
     Indication: BIPOLAR DISORDER
     Route: 048
  5. TRIAZOLAM [Concomitant]
     Route: 048
  6. TASMOLIN [Concomitant]
     Route: 048

REACTIONS (17)
  - BLOOD IMMUNOGLOBULIN M DECREASED [None]
  - WHITE BLOOD CELL COUNT INCREASED [None]
  - SWELLING FACE [None]
  - BLOOD IMMUNOGLOBULIN G DECREASED [None]
  - BLOOD ALKALINE PHOSPHATASE INCREASED [None]
  - DRUG RASH WITH EOSINOPHILIA AND SYSTEMIC SYMPTOMS [None]
  - RASH [None]
  - EYELID OEDEMA [None]
  - BLOOD LACTATE DEHYDROGENASE INCREASED [None]
  - EOSINOPHIL COUNT INCREASED [None]
  - ASPARTATE AMINOTRANSFERASE INCREASED [None]
  - LIVER DISORDER [None]
  - ERYTHEMA [None]
  - HUMAN HERPES VIRUS 6 SEROLOGY POSITIVE [None]
  - ALANINE AMINOTRANSFERASE INCREASED [None]
  - DRUG ERUPTION [None]
  - GAMMA-GLUTAMYLTRANSFERASE INCREASED [None]
